FAERS Safety Report 20697283 (Version 1)
Quarter: 2022Q2

REPORT INFORMATION
  Report Type: Report from Study
  Country: IN (occurrence: IN)
  Receive Date: 20220411
  Receipt Date: 20220411
  Transmission Date: 20220720
  Serious: Yes (Hospitalization, Other)
  Sender: FDA-Public Use
  Company Number: IN-NOVARTISPH-PHHY2014IN051275

PATIENT
  Age: 39 Year
  Sex: Male

DRUGS (11)
  1. SIMULECT [Suspect]
     Active Substance: BASILIXIMAB
     Indication: Renal transplant
     Dosage: 20 MG
     Route: 042
  2. SIMULECT [Suspect]
     Active Substance: BASILIXIMAB
     Indication: Liver transplant
     Dosage: 20 MG
     Route: 042
     Dates: start: 20140410
  3. SIMULECT [Suspect]
     Active Substance: BASILIXIMAB
     Dosage: 20 MG
     Route: 042
     Dates: start: 20180403, end: 20180406
  4. SIMULECT [Suspect]
     Active Substance: BASILIXIMAB
     Dosage: 1 DOSAGE FORM (20 MG)
     Route: 042
  5. METPURE XL [Concomitant]
     Indication: Product used for unknown indication
     Dosage: UNK
     Route: 065
  6. MEROPENEM [Concomitant]
     Active Substance: MEROPENEM
     Indication: Product used for unknown indication
     Dosage: UNK
     Route: 065
  7. TARGOCID [Concomitant]
     Active Substance: TEICOPLANIN
     Indication: Product used for unknown indication
     Dosage: UNK
     Route: 065
  8. TACROLIMUS [Concomitant]
     Active Substance: TACROLIMUS
     Indication: Product used for unknown indication
     Dosage: UNK
     Route: 065
  9. PREDNISOLONE [Concomitant]
     Active Substance: PREDNISOLONE
     Indication: Product used for unknown indication
     Dosage: 1 DOSAGE FORM
     Route: 065
  10. TRIAMCINOLONE ACETONIDE [Concomitant]
     Active Substance: TRIAMCINOLONE ACETONIDE
     Indication: Product used for unknown indication
     Dosage: UNK
     Route: 065
  11. MYCOPHENOLATE MOFETIL [Concomitant]
     Active Substance: MYCOPHENOLATE MOFETIL
     Indication: Product used for unknown indication
     Dosage: UNK
     Route: 065

REACTIONS (13)
  - Glomerulonephritis membranoproliferative [Unknown]
  - Transplant rejection [Unknown]
  - Sepsis [Unknown]
  - Delayed graft function [Unknown]
  - Immunosuppression [Unknown]
  - Palpitations [Unknown]
  - Oedema peripheral [Unknown]
  - Chills [Unknown]
  - Kidney transplant rejection [Unknown]
  - Liver transplant rejection [Unknown]
  - Hypertension [Unknown]
  - Tachycardia [Unknown]
  - Pyrexia [Unknown]

NARRATIVE: CASE EVENT DATE: 20140417
